FAERS Safety Report 9342180 (Version 1)
Quarter: 2013Q2

REPORT INFORMATION
  Report Type: Spontaneous
  Country: None (occurrence: None)
  Receive Date: 20130607
  Receipt Date: 20130607
  Transmission Date: 20140414
  Serious: Yes (Death)
  Sender: FDA-Public Use
  Company Number: GB-SEPTODONT-199901293

PATIENT
  Age: 68 Year
  Sex: Female

DRUGS (2)
  1. LIGNOSPAN FORTE [Suspect]
     Indication: LOCAL ANAESTHESIA
     Dosage: DENTAL
     Dates: start: 19930128
  2. SCANDONEST L [Suspect]
     Indication: LOCAL ANAESTHESIA
     Dosage: DENTAL
     Dates: start: 19930128

REACTIONS (5)
  - Myocardial infarction [None]
  - Overdose [None]
  - Cardiac arrest [None]
  - Conduction disorder [None]
  - Arrhythmia [None]
